FAERS Safety Report 16170313 (Version 2)
Quarter: 2019Q2

REPORT INFORMATION
  Report Type: Spontaneous
  Country: US (occurrence: US)
  Receive Date: 20190408
  Receipt Date: 20190606
  Transmission Date: 20190711
  Serious: No
  Sender: FDA-Public Use
  Company Number: US-TEVA-2019-US-1034920

PATIENT
  Sex: Female

DRUGS (1)
  1. TEVA VERAPAMIL [Suspect]
     Active Substance: VERAPAMIL HYDROCHLORIDE
     Dosage: 240 MILLIGRAM DAILY; 240MILLIGRAM/DAY
     Dates: start: 201903

REACTIONS (6)
  - Product substitution issue [Unknown]
  - Cognitive disorder [Recovered/Resolved]
  - Fall [Recovered/Resolved]
  - Balance disorder [Recovered/Resolved]
  - Asthenia [Recovered/Resolved]
  - Slow response to stimuli [Recovered/Resolved]
